FAERS Safety Report 24136931 (Version 1)
Quarter: 2024Q3

REPORT INFORMATION
  Report Type: Spontaneous
  Country: US (occurrence: None)
  Receive Date: 20240724
  Receipt Date: 20240724
  Transmission Date: 20241017
  Serious: Yes (Life-Threatening)
  Sender: Public
  Company Number: None

PATIENT
  Age: 77 Year
  Sex: Female

DRUGS (1)
  1. CEFDINIR [Suspect]
     Active Substance: CEFDINIR
     Indication: Urinary tract infection
     Dosage: 300 MG TWICE A DAY ORAL
     Route: 048
     Dates: start: 20240724

REACTIONS (7)
  - Diarrhoea [None]
  - Asthenia [None]
  - Dizziness [None]
  - Headache [None]
  - Dry throat [None]
  - Hypersensitivity [None]
  - Feeling jittery [None]

NARRATIVE: CASE EVENT DATE: 20240723
